FAERS Safety Report 12442000 (Version 1)
Quarter: 2016Q2

REPORT INFORMATION
  Report Type: Spontaneous
  Country: US (occurrence: None)
  Receive Date: 20160606
  Receipt Date: 20160606
  Transmission Date: 20160815
  Serious: Yes (Life-Threatening)
  Sender: FDA-Public Use
  Company Number: None

PATIENT
  Age: 62 Year
  Sex: Male

DRUGS (1)
  1. PENICILLIN [Suspect]
     Active Substance: PENICILLIN

REACTIONS (2)
  - Apparent death [None]
  - Unevaluable event [None]
